FAERS Safety Report 23699408 (Version 2)
Quarter: 2024Q2

REPORT INFORMATION
  Report Type: Spontaneous
  Country: JP (occurrence: JP)
  Receive Date: 20240402
  Receipt Date: 20240424
  Transmission Date: 20240716
  Serious: Yes (Hospitalization)
  Sender: FDA-Public Use
  Company Number: JP-DSPHARMA-2024SMP004104

PATIENT

DRUGS (4)
  1. LATUDA [Suspect]
     Active Substance: LURASIDONE HYDROCHLORIDE
     Indication: Schizophrenia
     Dosage: 80 MG, QD
     Route: 048
     Dates: start: 202303, end: 202402
  2. OLANZAPINE [Concomitant]
     Active Substance: OLANZAPINE
     Dosage: 20 MG, QD
     Route: 065
  3. REXULTI [Concomitant]
     Active Substance: BREXPIPRAZOLE
     Dosage: 2 MG, QD
     Route: 048
     Dates: start: 202303, end: 202402
  4. RISPERIDONE [Concomitant]
     Active Substance: RISPERIDONE
     Dosage: 12 MG, QD
     Route: 065
     Dates: start: 202312, end: 202402

REACTIONS (1)
  - Psychiatric symptom [Recovering/Resolving]

NARRATIVE: CASE EVENT DATE: 20240201
